FAERS Safety Report 16484726 (Version 1)
Quarter: 2019Q2

REPORT INFORMATION
  Report Type: Spontaneous
  Country: US (occurrence: US)
  Receive Date: 20190516
  Receipt Date: 20190516
  Transmission Date: 20190711
  Serious: Yes (Hospitalization)
  Sender: FDA-Public Use
  Company Number: None

PATIENT
  Age: 63 Year
  Sex: Male

DRUGS (16)
  1. FUROSEMIDE TAB [Concomitant]
  2. METOPROL SUC TAB [Concomitant]
  3. TAMSULOSIN CAP [Concomitant]
     Active Substance: TAMSULOSIN
  4. TOPIRAMATE TAB [Concomitant]
  5. CYCLOSPORINE CAP [Concomitant]
     Active Substance: CYCLOSPORINE
  6. FERPSUL TAB [Concomitant]
  7. SPIRONOLACT TAB [Concomitant]
  8. TADALAFIL 20MG TAB [Suspect]
     Active Substance: TADALAFIL
     Indication: PULMONARY ARTERIAL HYPERTENSION
     Dosage: ?          OTHER DOSE:1 TS;?
     Route: 048
     Dates: start: 201904
  9. AMOXK CLAV TAB [Concomitant]
  10. CLOPIDOGREL TAB [Concomitant]
  11. OXYCOD/APAP TAB [Concomitant]
  12. PREDNISONE TAB [Concomitant]
     Active Substance: PREDNISONE
  13. ZOLPIDEM TAB [Concomitant]
  14. DULOXETINE CAP [Concomitant]
     Active Substance: DULOXETINE HYDROCHLORIDE
  15. ELIQUIS TAB [Concomitant]
  16. PANTOPRAZOLE TAB [Concomitant]

REACTIONS (1)
  - Pneumonia [None]

NARRATIVE: CASE EVENT DATE: 20190416
